FAERS Safety Report 8344388-8 (Version None)
Quarter: 2012Q2

REPORT INFORMATION
  Report Type: 
  Country: None (occurrence: None)
  Receive Date: 20120508
  Receipt Date: 20120503
  Transmission Date: 20120825
  Serious: Yes (Other)
  Sender: FDA-Public Use
  Company Number: CA-ROCHE-1065814

PATIENT
  Age: 5 Year
  Sex: Male

DRUGS (4)
  1. MULTI-VITAMIN [Concomitant]
     Route: 065
  2. TYLENOL (CAPLET) [Concomitant]
     Route: 048
  3. MOTRIN [Concomitant]
     Route: 048
  4. TAMIFLU [Suspect]
     Indication: PRODUCT USED FOR UNKNOWN INDICATION
     Route: 048

REACTIONS (5)
  - DISTURBANCE IN ATTENTION [None]
  - ABNORMAL BEHAVIOUR [None]
  - COORDINATION ABNORMAL [None]
  - PSYCHOMOTOR HYPERACTIVITY [None]
  - ALTERED STATE OF CONSCIOUSNESS [None]
